FAERS Safety Report 25372837 (Version 1)
Quarter: 2025Q2

REPORT INFORMATION
  Report Type: Spontaneous
  Country: US (occurrence: US)
  Receive Date: 20250529
  Receipt Date: 20250529
  Transmission Date: 20250717
  Serious: No
  Sender: MERCK SHARP & DOHME LLC
  Company Number: US-009507513-2283622

PATIENT
  Sex: Male

DRUGS (4)
  1. TEMOZOLOMIDE [Suspect]
     Active Substance: TEMOZOLOMIDE
     Indication: Desmoplastic small round cell tumour
     Route: 048
  2. IRINOTECAN [Concomitant]
     Active Substance: IRINOTECAN
     Indication: Desmoplastic small round cell tumour
  3. TEMSIROLIMUS [Concomitant]
     Active Substance: TEMSIROLIMUS
     Indication: Desmoplastic small round cell tumour
  4. VDC/IE [Concomitant]
     Indication: Desmoplastic small round cell tumour

REACTIONS (1)
  - Off label use [Unknown]
